FAERS Safety Report 14825611 (Version 1)
Quarter: 2018Q2

REPORT INFORMATION
  Report Type: Spontaneous
  Country: FR (occurrence: FR)
  Receive Date: 20180430
  Receipt Date: 20180430
  Transmission Date: 20180711
  Serious: Yes (Other)
  Sender: FDA-Public Use
  Company Number: FR-MERCK KGAA-2046787

PATIENT
  Age: 40 Year
  Sex: Female

DRUGS (1)
  1. NOVOTHYROX [Suspect]
     Active Substance: LEVOTHYROXINE SODIUM
     Indication: HYPOTHYROIDISM
     Dates: start: 2017

REACTIONS (23)
  - Angioedema [None]
  - Arthralgia [None]
  - Colitis [None]
  - Myalgia [None]
  - Libido decreased [None]
  - Swelling face [None]
  - Mucosal pain [None]
  - Migraine [None]
  - Hyperhidrosis [None]
  - Hot flush [None]
  - Exophthalmos [None]
  - Constipation [None]
  - Loss of personal independence in daily activities [None]
  - Rash [None]
  - Abdominal distension [None]
  - Dysphonia [None]
  - Physical disability [None]
  - Back pain [None]
  - Depressed mood [None]
  - Muscular weakness [None]
  - Major depression [None]
  - Fatigue [None]
  - Gastrointestinal pain [None]

NARRATIVE: CASE EVENT DATE: 2017
